FAERS Safety Report 9186982 (Version 2)
Quarter: 2013Q2

REPORT INFORMATION
  Report Type: Spontaneous
  Country: US (occurrence: US)
  Receive Date: 20130325
  Receipt Date: 20130429
  Transmission Date: 20140414
  Serious: No
  Sender: FDA-Public Use
  Company Number: US-PFIZER INC-2013096408

PATIENT
  Age: 30 Year
  Sex: Female
  Weight: 52.15 kg

DRUGS (3)
  1. PRISTIQ [Suspect]
     Indication: DEPRESSION
     Dosage: UNK
     Dates: start: 2011
  2. PRISTIQ [Suspect]
     Dosage: 50 MG, DAILY
  3. PRISTIQ [Suspect]
     Dosage: 50 MG, ALTERNATE DAY
     Dates: end: 201303

REACTIONS (5)
  - Disturbance in attention [Not Recovered/Not Resolved]
  - Dizziness [Not Recovered/Not Resolved]
  - Paraesthesia [Not Recovered/Not Resolved]
  - Lethargy [Not Recovered/Not Resolved]
  - Headache [Not Recovered/Not Resolved]
